FAERS Safety Report 5508087-X (Version None)
Quarter: 2007Q4

REPORT INFORMATION
  Report Type: 
  Country: None (occurrence: None)
  Receive Date: 20071106
  Receipt Date: 20071025
  Transmission Date: 20080405
  Serious: Yes (Disabling, Other)
  Sender: FDA-Public Use
  Company Number: GB-PFIZER INC-2007092296

PATIENT
  Age: 63 Year
  Sex: Female
  Weight: 69 kg

DRUGS (6)
  1. CHAMPIX [Suspect]
     Route: 048
  2. ANASTROZOLE [Concomitant]
     Route: 048
  3. ATENOLOL [Concomitant]
     Route: 048
  4. CARBOMER [Concomitant]
     Route: 061
  5. CO-CODAMOL [Concomitant]
     Route: 048
  6. SIMVASTATIN [Concomitant]
     Route: 048

REACTIONS (6)
  - COLD SWEAT [None]
  - DIARRHOEA [None]
  - HEADACHE [None]
  - NAUSEA [None]
  - PAIN [None]
  - VOMITING [None]
